FAERS Safety Report 7556856-7 (Version None)
Quarter: 2011Q2

REPORT INFORMATION
  Report Type: 
  Country: None (occurrence: None)
  Receive Date: 20110620
  Receipt Date: 20110616
  Transmission Date: 20111010
  Serious: Yes (Hospitalization, Other)
  Sender: FDA-Public Use
  Company Number: CN-PFIZER INC-2011132824

PATIENT
  Age: 27 Year
  Sex: Female

DRUGS (1)
  1. AMLODIPINE BESYLATE [Suspect]
     Dosage: 5 MG, 42 TABLETS
     Route: 048

REACTIONS (10)
  - URINE OUTPUT DECREASED [None]
  - PLEURAL EFFUSION [None]
  - FACE OEDEMA [None]
  - OVERDOSE [None]
  - HYPOTENSION [None]
  - RENAL FAILURE ACUTE [None]
  - POLYURIA [None]
  - ASCITES [None]
  - BLOOD POTASSIUM DECREASED [None]
  - VOMITING [None]
